FAERS Safety Report 12467466 (Version 1)
Quarter: 2016Q2

REPORT INFORMATION
  Report Type: Spontaneous
  Country: DE (occurrence: DE)
  Receive Date: 20160615
  Receipt Date: 20160615
  Transmission Date: 20160815
  Serious: Yes (Hospitalization)
  Sender: FDA-Public Use
  Company Number: DE-BAYER-2016-114507

PATIENT
  Age: 31 Year
  Sex: Male
  Weight: 58 kg

DRUGS (1)
  1. ACETYLSALICYLIC ACID (} 100 MG) [Suspect]
     Active Substance: ASPIRIN
     Indication: NASOPHARYNGITIS
     Dosage: 500 MG, UNK
     Route: 048
     Dates: start: 20160526

REACTIONS (2)
  - Obstructive airways disorder [Unknown]
  - Asthma [Unknown]

NARRATIVE: CASE EVENT DATE: 20160526
